FAERS Safety Report 21853024 (Version 1)
Quarter: 2023Q1

REPORT INFORMATION
  Report Type: Spontaneous
  Country: CN (occurrence: CN)
  Receive Date: 20230112
  Receipt Date: 20230112
  Transmission Date: 20230417
  Serious: Yes (Other)
  Sender: FDA-Public Use
  Company Number: CN-HALEON-CNCH2023APC000964

PATIENT

DRUGS (1)
  1. IBUPROFEN [Suspect]
     Active Substance: IBUPROFEN
     Indication: Pyrexia
     Dosage: 0.3 G, BID
     Route: 048
     Dates: start: 20221221, end: 20221223

REACTIONS (7)
  - Rash erythematous [Recovering/Resolving]
  - Pruritus [Recovering/Resolving]
  - Erythema [Recovering/Resolving]
  - Rash papular [Recovering/Resolving]
  - Scratch [Recovering/Resolving]
  - Rash maculo-papular [Recovering/Resolving]
  - Fixed eruption [Recovering/Resolving]

NARRATIVE: CASE EVENT DATE: 20221201
